FAERS Safety Report 5008144-0 (Version None)
Quarter: 2006Q2

REPORT INFORMATION
  Report Type: 
  Country: None (occurrence: None)
  Receive Date: 20060404
  Receipt Date: 20051114
  Transmission Date: 20061013
  Serious: Yes (Life-Threatening)
  Sender: FDA-Public Use
  Company Number: 2005126363

PATIENT
  Age: 55 Year
  Sex: Male

DRUGS (4)
  1. GEODON [Suspect]
     Indication: BIPOLAR DISORDER
     Dosage: 80 MG (1 IN 1 D)
     Dates: start: 20050212
  2. GEODON [Suspect]
     Indication: PARANOIA
     Dosage: 80 MG (1 IN 1 D)
     Dates: start: 20050212
  3. BUPROPION (BUPROPION) [Concomitant]
  4. RISPERDAL [Concomitant]

REACTIONS (1)
  - TARDIVE DYSKINESIA [None]
